FAERS Safety Report 7601322-3 (Version None)
Quarter: 2011Q3

REPORT INFORMATION
  Report Type: 
  Country: None (occurrence: None)
  Receive Date: 20110711
  Receipt Date: 20110706
  Transmission Date: 20111222
  Serious: Yes (Other)
  Sender: FDA-Public Use
  Company Number: US-JNJFOC-20110501936

PATIENT
  Age: 50 Year
  Sex: Female

DRUGS (4)
  1. CYMBALTA [Concomitant]
     Route: 065
  2. PPI [Concomitant]
     Route: 065
  3. NUCYNTA [Suspect]
     Indication: PAIN
     Route: 048
     Dates: start: 20110401, end: 20110428
  4. EFFEXOR [Concomitant]
     Route: 065

REACTIONS (3)
  - MUSCLE RIGIDITY [None]
  - AGITATION [None]
  - CLONUS [None]
